FAERS Safety Report 25395482 (Version 2)
Quarter: 2025Q3

REPORT INFORMATION
  Report Type: Spontaneous
  Country: EU (occurrence: EU)
  Receive Date: 20250604
  Receipt Date: 20250702
  Transmission Date: 20251020
  Serious: Yes (Other)
  Sender: NOVARTIS
  Company Number: EU-002147023-NVSC2025CZ087579

PATIENT
  Sex: Male
  Weight: 2.2 kg

DRUGS (1)
  1. KESIMPTA [Suspect]
     Active Substance: OFATUMUMAB
     Indication: Foetal exposure during pregnancy
     Route: 064

REACTIONS (3)
  - Premature baby [Unknown]
  - Normal newborn [Unknown]
  - Foetal exposure during pregnancy [Unknown]
